FAERS Safety Report 13770005 (Version 4)
Quarter: 2018Q1

REPORT INFORMATION
  Report Type: Report from Study
  Country: CN (occurrence: CN)
  Receive Date: 20170719
  Receipt Date: 20180208
  Transmission Date: 20180508
  Serious: Yes (Death, Other)
  Sender: FDA-Public Use
  Company Number: PHHO2017CN010281

PATIENT
  Age: 59 Year
  Sex: Female
  Weight: 59 kg

DRUGS (6)
  1. TYKERB [Suspect]
     Active Substance: LAPATINIB DITOSYLATE
     Indication: BREAST CANCER
     Dosage: 1250 MG, QD
     Route: 048
     Dates: start: 20160224, end: 20160516
  2. TYKERB [Suspect]
     Active Substance: LAPATINIB DITOSYLATE
     Dosage: 1250 MG, QD
     Route: 048
     Dates: start: 20160525, end: 20160920
  3. CAPECITABINE. [Suspect]
     Active Substance: CAPECITABINE
     Dosage: 1.2 G, BID
     Route: 048
  4. CAPECITABINE. [Suspect]
     Active Substance: CAPECITABINE
     Dosage: 3.0 G, BID
     Route: 048
     Dates: start: 20160412, end: 20160516
  5. CAPECITABINE. [Suspect]
     Active Substance: CAPECITABINE
     Dosage: 2.4 G, BID
     Route: 048
     Dates: start: 20160525, end: 20160920
  6. CAPECITABINE. [Suspect]
     Active Substance: CAPECITABINE
     Indication: BREAST CANCER
     Dosage: 3.0 G, BID
     Route: 048
     Dates: start: 20160224, end: 20160406

REACTIONS (6)
  - Breast cancer [Unknown]
  - Malignant neoplasm progression [Unknown]
  - Platelet count increased [Recovered/Resolved]
  - Palmar-plantar erythrodysaesthesia syndrome [Recovering/Resolving]
  - Hypertriglyceridaemia [Recovering/Resolving]
  - Death [Fatal]

NARRATIVE: CASE EVENT DATE: 201604
